FAERS Safety Report 8346021-8 (Version None)
Quarter: 2012Q2

REPORT INFORMATION
  Report Type: 
  Country: None (occurrence: None)
  Receive Date: 20120509
  Receipt Date: 20120503
  Transmission Date: 20120825
  Serious: No
  Sender: FDA-Public Use
  Company Number: US-PFIZER INC-2012109294

PATIENT
  Sex: Female

DRUGS (21)
  1. DRONEDARONE [Concomitant]
     Dosage: 400 MG, UNK
  2. OMEGA-3/VITAMIN A/VITAMIN D/VITAMIN E [Concomitant]
     Dosage: 1 CAPSULE TWICE DAILY
  3. PREMARIN [Suspect]
     Dosage: UNK MG/G, UNK
  4. ATACAND [Concomitant]
     Dosage: 16 MG, UNK
     Route: 048
  5. BIOTIN [Concomitant]
     Dosage: 5000 MCG
  6. MULTI-VITAMINS [Concomitant]
  7. POTASSIUM CHLORIDE [Concomitant]
     Dosage: 10 MEQ CAPSULES TWICE DAILY
     Route: 048
  8. DARVOCET [Concomitant]
     Indication: PAIN
  9. XANAX [Suspect]
     Dosage: 0.25 MG, 1 TO 2 TABLET TID PRN
     Route: 048
  10. ATIVAN [Concomitant]
     Dosage: 1 MG TABLET
     Route: 048
  11. NIACIN [Concomitant]
     Dosage: 500 MG, UNK
  12. BUMETANIDE [Concomitant]
     Dosage: 2 MG, TAKE 1 TABLET
     Route: 048
  13. L-LYSINE [Concomitant]
     Dosage: 500 MG, 2X/DAY
  14. PRILOSEC [Concomitant]
     Dosage: 40 MG CAPSULES EXTENDED RELEASE
     Route: 048
  15. ASPIRIN [Concomitant]
     Dosage: 81 MA TABLETS, ENTERIC COATED TAKE 1 TABLET BY MOUTH
     Route: 048
  16. SIMVASTATIN [Concomitant]
     Dosage: 40 MG TAKE 1 TABLET BY MOUTH
     Route: 048
  17. HYDROCODONE BITARTRATE + ACETAMINOPHEN [Concomitant]
     Dosage: 7.5MG/325 MG TABLET
  18. LUNESTA [Concomitant]
     Dosage: 2 MG, UNK
  19. SINGULAIR [Concomitant]
     Dosage: 10 MG TABLET
     Route: 048
  20. BACLOFEN [Concomitant]
     Dosage: 10 MG, 2X/DAY
  21. BIOFLAVONOIDS [Concomitant]
     Dosage: 2 CAPSULES DAILY

REACTIONS (1)
  - ATROPHIC VULVOVAGINITIS [None]
